FAERS Safety Report 4567375-4 (Version None)
Quarter: 2005Q1

REPORT INFORMATION
  Report Type: 
  Country: None (occurrence: None)
  Receive Date: 20050127
  Receipt Date: 20050118
  Transmission Date: 20050727
  Serious: Yes (Hospitalization)
  Sender: FDA-Public Use
  Company Number: TCI2005A00158

PATIENT
  Age: 75 Year
  Sex: Male

DRUGS (19)
  1. PIOGLITAZONE HYDROCHLORIDE (PIOGLITAZONE HYDROCHLORIDE) [Suspect]
     Indication: DIABETES MELLITUS NON-INSULIN-DEPENDENT
     Dosage: 15 MG (15 MG, 1 IN 1 D) PER ORAL; 30 MG (30 MG, 1 IN 1 D) PER ORAL
     Route: 048
     Dates: start: 20031211, end: 20040204
  2. PIOGLITAZONE HYDROCHLORIDE (PIOGLITAZONE HYDROCHLORIDE) [Suspect]
     Indication: DIABETES MELLITUS NON-INSULIN-DEPENDENT
     Dosage: 15 MG (15 MG, 1 IN 1 D) PER ORAL; 30 MG (30 MG, 1 IN 1 D) PER ORAL
     Route: 048
     Dates: start: 20040205
  3. VOGLIBOSE (CODE NOT BROKEN) (VOGLIBOSE) [Suspect]
     Indication: DIABETES MELLITUS NON-INSULIN-DEPENDENT
     Dosage: SEE IMAGE
     Route: 048
     Dates: start: 20031210, end: 20031210
  4. VOGLIBOSE (CODE NOT BROKEN) (VOGLIBOSE) [Suspect]
     Indication: DIABETES MELLITUS NON-INSULIN-DEPENDENT
     Dosage: SEE IMAGE
     Route: 048
     Dates: start: 20040525, end: 20040524
  5. VOGLIBOSE (CODE NOT BROKEN) (VOGLIBOSE) [Suspect]
     Indication: DIABETES MELLITUS NON-INSULIN-DEPENDENT
     Dosage: SEE IMAGE
     Route: 048
     Dates: start: 20031211, end: 20040524
  6. BASEN (VOGLIBOSE) [Suspect]
     Indication: DIABETES MELLITUS NON-INSULIN-DEPENDENT
     Dosage: SEE IMAGE
     Route: 048
     Dates: start: 20030403, end: 20031209
  7. BASEN (VOGLIBOSE) [Suspect]
     Indication: DIABETES MELLITUS NON-INSULIN-DEPENDENT
     Dosage: SEE IMAGE
     Route: 048
     Dates: start: 20031210, end: 20031210
  8. BASEN (VOGLIBOSE) [Suspect]
     Indication: DIABETES MELLITUS NON-INSULIN-DEPENDENT
     Dosage: SEE IMAGE
     Route: 048
     Dates: start: 20040525, end: 20040525
  9. BASEN (VOGLIBOSE) [Suspect]
     Indication: DIABETES MELLITUS NON-INSULIN-DEPENDENT
     Dosage: SEE IMAGE
     Route: 048
     Dates: start: 20040526
  10. TELMISARTAN [Concomitant]
  11. PL GRAN. [Concomitant]
  12. CEFDINIR [Concomitant]
  13. OTHER COLD COMBINATION PREPARATIONS [Concomitant]
  14. AMOXICILLIN [Concomitant]
  15. DEXTROMETHORPHAN HYDROBROMIDE [Concomitant]
  16. CARBOCISTEINE [Concomitant]
  17. TRANEXAMIC ACID [Concomitant]
  18. CLOPERASTINE HYDROCHLORIDE [Concomitant]
  19. GLIMEPIRIDE [Concomitant]

REACTIONS (4)
  - BLADDER NEOPLASM [None]
  - CELLS IN URINE [None]
  - HAEMATURIA [None]
  - RENAL CYST [None]
